FAERS Safety Report 4439631-1 (Version None)
Quarter: 2004Q3

REPORT INFORMATION
  Report Type: 
  Country: None (occurrence: None)
  Receive Date: 20040902
  Receipt Date: 20040823
  Transmission Date: 20050211
  Serious: Yes (Hospitalization)
  Sender: FDA-Public Use
  Company Number: NL-BRISTOL-MYERS SQUIBB COMPANY-12684932

PATIENT
  Age: 46 Year
  Sex: Female

DRUGS (2)
  1. METFORMIN HCL [Suspect]
     Indication: DIABETES MELLITUS
     Dosage: DOSAGE FORM = TABLET
     Route: 048
     Dates: start: 19980414
  2. BLINDED: PLACEBO [Suspect]
     Indication: DIABETES MELLITUS
     Dosage: DOSAGE FORM = TABLET
     Route: 048
     Dates: start: 19980414

REACTIONS (2)
  - CIRCULATORY COLLAPSE [None]
  - HYPERGLYCAEMIA [None]
